FAERS Safety Report 25584866 (Version 1)
Quarter: 2025Q3

REPORT INFORMATION
  Report Type: Spontaneous
  Country: US (occurrence: US)
  Receive Date: 20250721
  Receipt Date: 20250721
  Transmission Date: 20251021
  Serious: No
  Sender: ZYDUS PHARM
  Company Number: US-CADILA HEALTHCARE LIMITED-US-ZYDUS-125804

PATIENT

DRUGS (1)
  1. BOSENTAN [Suspect]
     Active Substance: BOSENTAN
     Indication: Product used for unknown indication
     Route: 065

REACTIONS (11)
  - Malaise [Unknown]
  - Illness [Unknown]
  - Therapy interrupted [Unknown]
  - Vomiting [Unknown]
  - Insomnia [Unknown]
  - Ulcer [Unknown]
  - Lactose intolerance [Unknown]
  - Fatigue [Unknown]
  - Abdominal distension [Unknown]
  - Feeling abnormal [Unknown]
  - Somnolence [Unknown]

NARRATIVE: CASE EVENT DATE: 20250601
